FAERS Safety Report 16322478 (Version 2)
Quarter: 2019Q2

REPORT INFORMATION
  Report Type: Spontaneous
  Country: JP (occurrence: JP)
  Receive Date: 20190516
  Receipt Date: 20190530
  Transmission Date: 20190711
  Serious: Yes (Hospitalization, Other)
  Sender: FDA-Public Use
  Company Number: JP-ELI_LILLY_AND_COMPANY-JP201904012857

PATIENT
  Age: 45 Year
  Sex: Female

DRUGS (2)
  1. VERZENIO [Suspect]
     Active Substance: ABEMACICLIB
     Indication: BREAST CANCER RECURRENT
     Dosage: 150 MG, BID
     Route: 048
     Dates: start: 20190409, end: 20190502
  2. FULVESTRANT. [Concomitant]
     Active Substance: FULVESTRANT
     Indication: BREAST CANCER RECURRENT
     Dosage: UNK
     Route: 030
     Dates: start: 20190409, end: 201905

REACTIONS (6)
  - Nausea [Not Recovered/Not Resolved]
  - Thrombocytopenia [Recovering/Resolving]
  - Malignant neoplasm progression [Unknown]
  - Disseminated intravascular coagulation [Recovering/Resolving]
  - Vomiting [Not Recovered/Not Resolved]
  - Liver function test increased [Not Recovered/Not Resolved]

NARRATIVE: CASE EVENT DATE: 201904
